FAERS Safety Report 19145487 (Version 1)
Quarter: 2021Q2

REPORT INFORMATION
  Report Type: Spontaneous
  Country: IN (occurrence: IN)
  Receive Date: 20210416
  Receipt Date: 20210416
  Transmission Date: 20210717
  Serious: Yes (Other)
  Sender: FDA-Public Use
  Company Number: IN-PFIZER INC-2021366878

PATIENT
  Age: 67 Year
  Sex: Female

DRUGS (4)
  1. ZOLEDRONIC ACID [Concomitant]
     Active Substance: ZOLEDRONIC ACID
     Dosage: 4 MG, MONTHLY ((100ML NS) IN 30MIN)
  2. PALBACE [Suspect]
     Active Substance: PALBOCICLIB
     Indication: BREAST CANCER METASTATIC
     Dosage: 125 MG, CYCLIC ((ONCE A DAY, D1?X (21 DAYS) (X 1 MONTH))
     Route: 048
     Dates: start: 20200309
  3. FULVESTRANT. [Concomitant]
     Active Substance: FULVESTRANT
     Dosage: 25 MG, MONTHLY
  4. ULTRACET [Concomitant]
     Active Substance: ACETAMINOPHEN\TRAMADOL HYDROCHLORIDE
     Dosage: UNK, 2X/DAY

REACTIONS (1)
  - Heart rate increased [Unknown]
